FAERS Safety Report 7145035-3 (Version None)
Quarter: 2010Q4

REPORT INFORMATION
  Report Type: 
  Country: None (occurrence: None)
  Receive Date: 20101124
  Receipt Date: 20101112
  Transmission Date: 20110411
  Serious: Yes (Other)
  Sender: FDA-Public Use
  Company Number: DSA_44398_2010

PATIENT
  Sex: Female

DRUGS (5)
  1. BUPROPION HCL [Suspect]
     Indication: DEPRESSION
     Dosage: 150 MG QD
     Dates: start: 20100901, end: 20101103
  2. LEVOTHYROXINE SODIUM [Concomitant]
  3. METHOTREXATE [Concomitant]
  4. FLUOXETINE [Concomitant]
  5. ANALGESICS [Concomitant]

REACTIONS (1)
  - CONTUSION [None]
